FAERS Safety Report 18298623 (Version 1)
Quarter: 2020Q3

REPORT INFORMATION
  Report Type: Report from Study
  Country: FR (occurrence: FR)
  Receive Date: 20200923
  Receipt Date: 20200923
  Transmission Date: 20201104
  Serious: Yes (Other)
  Sender: FDA-Public Use
  Company Number: FR-TEVA-2020-FR-1831836

PATIENT
  Age: 91 Year
  Sex: Female
  Weight: 44 kg

DRUGS (12)
  1. BENDAMUSTINE HYDROCHLORIDE. [Suspect]
     Active Substance: BENDAMUSTINE HYDROCHLORIDE
     Dosage: (CYCLE 2)
     Route: 042
     Dates: start: 20200616
  2. POLATUZUMAB VEDOTIN. [Suspect]
     Active Substance: POLATUZUMAB VEDOTIN
     Dosage: (CYCLE 3)
     Route: 065
     Dates: start: 20200715
  3. RITUXIMAB. [Suspect]
     Active Substance: RITUXIMAB
     Dosage: (CYCLE 2)
     Route: 065
     Dates: start: 20200616
  4. BENDAMUSTINE HYDROCHLORIDE. [Suspect]
     Active Substance: BENDAMUSTINE HYDROCHLORIDE
     Indication: DIFFUSE LARGE B-CELL LYMPHOMA
     Dosage: (CYCLE 1)
     Route: 042
     Dates: start: 20200520
  5. BENDAMUSTINE HYDROCHLORIDE. [Suspect]
     Active Substance: BENDAMUSTINE HYDROCHLORIDE
     Dosage: (CYCLE 3)
     Route: 042
     Dates: start: 20200715
  6. RITUXIMAB. [Suspect]
     Active Substance: RITUXIMAB
     Dosage: (CYCLE 4)
     Route: 065
     Dates: start: 20200812
  7. POLATUZUMAB VEDOTIN. [Suspect]
     Active Substance: POLATUZUMAB VEDOTIN
     Dosage: (CYCLE 4)
     Route: 065
     Dates: start: 20200812
  8. POLATUZUMAB VEDOTIN. [Suspect]
     Active Substance: POLATUZUMAB VEDOTIN
     Indication: DIFFUSE LARGE B-CELL LYMPHOMA
     Dosage: (CYCLE 1)
     Route: 065
     Dates: start: 20200520
  9. POLATUZUMAB VEDOTIN. [Suspect]
     Active Substance: POLATUZUMAB VEDOTIN
     Dosage: (CYCLE 2)
     Route: 065
     Dates: start: 20200616
  10. BENDAMUSTINE HYDROCHLORIDE. [Suspect]
     Active Substance: BENDAMUSTINE HYDROCHLORIDE
     Dosage: (CYCLE 4)
     Route: 042
     Dates: start: 20200812
  11. RITUXIMAB. [Suspect]
     Active Substance: RITUXIMAB
     Indication: DIFFUSE LARGE B-CELL LYMPHOMA
     Dosage: (CYCLE 1)
     Route: 065
     Dates: start: 20200520
  12. RITUXIMAB. [Suspect]
     Active Substance: RITUXIMAB
     Dosage: (CYCLE 3)
     Route: 065
     Dates: start: 20200715

REACTIONS (2)
  - Polyneuropathy [Not Recovered/Not Resolved]
  - Product use in unapproved indication [Unknown]

NARRATIVE: CASE EVENT DATE: 20200520
